FAERS Safety Report 8896256 (Version 1)
Quarter: 2012Q4

REPORT INFORMATION
  Report Type: Spontaneous
  Country: US (occurrence: None)
  Receive Date: 20121106
  Receipt Date: 20121106
  Transmission Date: 20130627
  Serious: Yes (Other)
  Sender: FDA-Public Use
  Company Number: None

PATIENT
  Age: 58 Year
  Sex: Female
  Weight: 58.97 kg

DRUGS (1)
  1. ALENDRONATE SODIUM [Suspect]
     Indication: OSTEOPOROSIS
     Dosage: 70mg 1 x weekly po
     Route: 048
     Dates: start: 20120501, end: 20121028

REACTIONS (13)
  - Dysgeusia [None]
  - Salivary hypersecretion [None]
  - Dysgeusia [None]
  - Muscle spasms [None]
  - Muscle spasms [None]
  - Abdominal pain [None]
  - Swollen tongue [None]
  - Dizziness [None]
  - Confusional state [None]
  - Hypoaesthesia [None]
  - Hypoaesthesia [None]
  - Heart rate increased [None]
  - Dyspnoea [None]
